FAERS Safety Report 17100088 (Version 1)
Quarter: 2019Q4

REPORT INFORMATION
  Report Type: Spontaneous
  Country: FR (occurrence: FR)
  Receive Date: 20191202
  Receipt Date: 20191202
  Transmission Date: 20200122
  Serious: Yes (Hospitalization)
  Sender: FDA-Public Use
  Company Number: NVSC2019FR047723

PATIENT
  Age: 23 Year
  Sex: Female
  Weight: 53 kg

DRUGS (3)
  1. MIFEPRISTONE [Concomitant]
     Active Substance: MIFEPRISTONE
     Indication: ABORTION INDUCED
     Dosage: 3 DF, TOTAL
     Route: 048
     Dates: start: 20190605, end: 20190605
  2. IBUPROFEN. [Suspect]
     Active Substance: IBUPROFEN
     Indication: PAIN
     Dosage: 1 DF, TOTAL
     Route: 048
     Dates: start: 20190607, end: 20190607
  3. MISOPROSTOL. [Suspect]
     Active Substance: MISOPROSTOL
     Indication: ABORTION INDUCED
     Dosage: 2 DF, TOTAL
     Route: 048
     Dates: start: 20190607, end: 20190607

REACTIONS (1)
  - Anaphylactic shock [Recovered/Resolved]

NARRATIVE: CASE EVENT DATE: 20190607
